FAERS Safety Report 7335033-9 (Version None)
Quarter: 2011Q1

REPORT INFORMATION
  Report Type: 
  Country: None (occurrence: None)
  Receive Date: 20110307
  Receipt Date: 20110303
  Transmission Date: 20110831
  Serious: Yes (Other)
  Sender: FDA-Public Use
  Company Number: DE-ROCHE-763316

PATIENT
  Sex: Female

DRUGS (5)
  1. ELTROMBOPAG [Suspect]
     Indication: THROMBOCYTOPENIA
     Route: 048
     Dates: start: 20090810, end: 20090823
  2. PLACEBO [Suspect]
     Indication: THROMBOCYTOPENIA
     Route: 048
     Dates: start: 20090824, end: 20100207
  3. RIBAVIRIN [Suspect]
     Route: 050
     Dates: start: 20090824, end: 20091215
  4. PEGINTERFERON ALFA-2A [Suspect]
     Dosage: VARIABLE DOSES
     Route: 058
     Dates: start: 20090824, end: 20110204
  5. RIBAVIRIN [Suspect]
     Route: 050
     Dates: start: 20091216, end: 20100207

REACTIONS (1)
  - CATARACT [None]
